FAERS Safety Report 9356245 (Version 3)
Quarter: 2013Q3

REPORT INFORMATION
  Report Type: Spontaneous
  Country: US (occurrence: US)
  Receive Date: 20130619
  Receipt Date: 20130708
  Transmission Date: 20140515
  Serious: No
  Sender: FDA-Public Use
  Company Number: US-PFIZER INC-2013184043

PATIENT
  Age: 49 Year
  Sex: Female
  Weight: 87.08 kg

DRUGS (3)
  1. LYRICA [Suspect]
     Indication: FIBROMYALGIA
     Dosage: 75 MG, 2X/DAY
     Route: 048
     Dates: end: 201306
  2. SAVELLA [Concomitant]
     Dosage: 50 MG, 2X/DAY
  3. SOMA [Concomitant]
     Indication: PAIN
     Dosage: 350 MG, 4X/DAY

REACTIONS (1)
  - Pain [Unknown]
